FAERS Safety Report 14920585 (Version 1)
Quarter: 2018Q2

REPORT INFORMATION
  Report Type: Report from Study
  Country: DE (occurrence: DE)
  Receive Date: 20180521
  Receipt Date: 20180521
  Transmission Date: 20180711
  Serious: Yes (Hospitalization)
  Sender: FDA-Public Use
  Company Number: DE-SHIRE-DE201818565

PATIENT
  Sex: Male
  Weight: 77.5 kg

DRUGS (12)
  1. TEDUGLUTIDE [Suspect]
     Active Substance: TEDUGLUTIDE
     Dosage: 2.0 MG, 3 PER WEEK
     Route: 065
     Dates: start: 20150925, end: 20151001
  2. TEDUGLUTIDE [Suspect]
     Active Substance: TEDUGLUTIDE
     Dosage: 2.0 MG, 4 PER WEEK
     Route: 065
     Dates: start: 20150918, end: 20150924
  3. TEDUGLUTIDE [Suspect]
     Active Substance: TEDUGLUTIDE
     Dosage: 2.0 MG, 1X/DAY:QD
     Route: 065
     Dates: start: 20151015, end: 201604
  4. TEDUGLUTIDE [Suspect]
     Active Substance: TEDUGLUTIDE
     Dosage: 2.5 MG, 7 PER WEEK
     Route: 065
     Dates: start: 20160419, end: 20161026
  5. TEDUGLUTIDE [Suspect]
     Active Substance: TEDUGLUTIDE
     Dosage: 2.0 MG, 4 PER WEEK
     Route: 065
     Dates: start: 20151009, end: 20151015
  6. TILIDIN [Concomitant]
     Active Substance: NALOXONE HYDROCHLORIDE\TILIDINE HYDROCHLORIDE
     Indication: SPINAL COLUMN STENOSIS
     Route: 048
  7. TEDUGLUTIDE [Suspect]
     Active Substance: TEDUGLUTIDE
     Indication: SHORT-BOWEL SYNDROME
     Dosage: 3.8 MG, 1X/DAY:QD
     Route: 065
     Dates: start: 20150511, end: 20150911
  8. TEDUGLUTIDE [Suspect]
     Active Substance: TEDUGLUTIDE
     Dosage: 2.0 MG, 4 PER WEEK
     Route: 065
     Dates: start: 20151002, end: 20151008
  9. TEDUGLUTIDE [Suspect]
     Active Substance: TEDUGLUTIDE
     Dosage: 2.7 MG, 7 PER WEEK
     Route: 005
     Dates: start: 20161027
  10. METAMIZOL [Concomitant]
     Active Substance: METAMIZOLE SODIUM
     Indication: SPINAL COLUMN STENOSIS
  11. PANTOPRAZOLE [Concomitant]
     Active Substance: PANTOPRAZOLE
     Indication: OESOPHAGITIS
  12. ANALGESIC [Concomitant]
     Active Substance: UNSPECIFIED INGREDIENT
     Indication: INTERVERTEBRAL DISC PROTRUSION

REACTIONS (2)
  - Endocarditis [Not Recovered/Not Resolved]
  - Device related infection [Unknown]

NARRATIVE: CASE EVENT DATE: 201805
